FAERS Safety Report 20018241 (Version 1)
Quarter: 2021Q4

REPORT INFORMATION
  Report Type: Spontaneous
  Country: CN (occurrence: CN)
  Receive Date: 20211101
  Receipt Date: 20211101
  Transmission Date: 20220303
  Serious: Yes (Hospitalization, Other)
  Sender: FDA-Public Use
  Company Number: CN-009507513-2110CHN007704

PATIENT
  Age: 65 Year
  Sex: Male
  Weight: 71 kg

DRUGS (2)
  1. CILASTATIN SODIUM\IMIPENEM [Suspect]
     Active Substance: CILASTATIN SODIUM\IMIPENEM
     Indication: Pyrexia
     Dosage: DOSE: 0.5 G, FREQUENCY: 4 TIMES A DAY
     Route: 041
     Dates: start: 20210823, end: 20210913
  2. SODIUM CHLORIDE [Concomitant]
     Active Substance: SODIUM CHLORIDE
     Indication: Vehicle solution use
     Dosage: DOSE: 100 ML, FREQUENCY: 4 TIMES A DAY (ALSO REPORTED AS 3 TIMES A DAY)
     Route: 041
     Dates: start: 20210823

REACTIONS (3)
  - Hallucination [Recovered/Resolved]
  - Communication disorder [Recovered/Resolved]
  - Disorganised speech [Recovered/Resolved]

NARRATIVE: CASE EVENT DATE: 20210912
